FAERS Safety Report 9822096 (Version 1)
Quarter: 2014Q1

REPORT INFORMATION
  Report Type: Spontaneous
  Country: BR (occurrence: BR)
  Receive Date: 20140116
  Receipt Date: 20140116
  Transmission Date: 20141002
  Serious: Yes (Other)
  Sender: FDA-Public Use
  Company Number: BR-PFIZER INC-2014013948

PATIENT
  Sex: Male

DRUGS (7)
  1. ATENOLOL [Suspect]
     Indication: BLOOD PRESSURE
     Dosage: 100 MG, UNK
     Route: 048
  2. OMEPRAZOLE [Suspect]
     Indication: PROPHYLAXIS
     Dosage: 20 MG, UNK
     Route: 048
  3. BRILINTA [Suspect]
     Dosage: 90 MG, 2X/DAY
     Route: 048
     Dates: start: 201304
  4. SIMVASTATIN [Concomitant]
     Indication: BLOOD CHOLESTEROL
     Dosage: UNK
     Route: 065
  5. SUSTRATE [Concomitant]
     Indication: CHEST PAIN
     Dosage: UNK
     Route: 065
  6. DONAREN [Concomitant]
     Indication: DEPRESSION
     Dosage: UNK
     Route: 065
  7. AAS [Concomitant]
     Dosage: UNK
     Route: 065

REACTIONS (2)
  - Coronary artery restenosis [Not Recovered/Not Resolved]
  - Liver disorder [Recovered/Resolved]
